FAERS Safety Report 7067347-4 (Version None)
Quarter: 2010Q4

REPORT INFORMATION
  Report Type: 
  Country: None (occurrence: None)
  Receive Date: 20101022
  Receipt Date: 20101022
  Transmission Date: 20110411
  Serious: Yes (Hospitalization)
  Sender: FDA-Public Use
  Company Number: None

PATIENT
  Sex: Male
  Weight: 58.8 kg

DRUGS (18)
  1. DAUNORUBICIN HCL [Suspect]
     Dosage: 195 MG
     Dates: end: 20100903
  2. METHOTREXATE [Suspect]
     Dosage: 30 MG
     Dates: end: 20100831
  3. PEG-L-ASPARAGINASE (PEGASPARGASE, ONCOSPAR) [Suspect]
     Dosage: 7875 UNIT
     Dates: end: 20100906
  4. PREDNISONE [Suspect]
     Dosage: 3780 MG
     Dates: end: 20100916
  5. VINCRISTINE SULFATE [Suspect]
     Dosage: 12 MG
     Dates: end: 20100910
  6. CYTARABINE [Suspect]
     Dosage: 70 MG
     Dates: end: 20100803
  7. ALLOPURINOL [Concomitant]
  8. DIPHENHYDRAMINE HCL [Concomitant]
  9. DOCUSATE [Concomitant]
  10. LANSOPRAZOLE [Concomitant]
  11. LIDOCAINE [Concomitant]
  12. METOCLOPRAMIDE [Concomitant]
  13. ONDANSETRON [Concomitant]
  14. OXYCODONE HCL [Concomitant]
  15. PEGASPARGASE [Concomitant]
  16. POLYETHYLENE GLYCOL [Concomitant]
  17. SEVELAMER [Concomitant]
  18. SULFAMETHOXAZOLE AND TRIMETHOPRIM [Concomitant]

REACTIONS (2)
  - BLOOD BILIRUBIN INCREASED [None]
  - HYPERGLYCAEMIA [None]
